FAERS Safety Report 8995880 (Version 1)
Quarter: 2013Q1

REPORT INFORMATION
  Report Type: Spontaneous
  Country: GB (occurrence: GB)
  Receive Date: 20130103
  Receipt Date: 20130103
  Transmission Date: 20140127
  Serious: Yes (Hospitalization)
  Sender: FDA-Public Use
  Company Number: GB-TEVA-378242ISR

PATIENT
  Age: 82 Year
  Sex: Female
  Weight: 41.5 kg

DRUGS (8)
  1. QUETIAPINE [Suspect]
     Dosage: AT NIGHT
     Route: 048
     Dates: start: 20110613, end: 20121217
  2. CALCICHEW D3 [Concomitant]
  3. FOLIC ACID [Concomitant]
  4. LACTULOSE SOLUTION [Concomitant]
  5. SENNA [Concomitant]
  6. CO-CODAMOL [Concomitant]
  7. ENOXAPARIN SODIUM [Concomitant]
     Dosage: FOR 28 DAYS POST SURGERY FOR FRACTURE OF NECK OF FEMUR. COURSE COMPLETED.
     Dates: end: 20121208
  8. MICONAZOLE [Concomitant]

REACTIONS (3)
  - Diabetes insipidus [Not Recovered/Not Resolved]
  - Hypernatraemia [Not Recovered/Not Resolved]
  - Dehydration [Unknown]
